FAERS Safety Report 21554275 (Version 1)
Quarter: 2022Q4

REPORT INFORMATION
  Report Type: Spontaneous
  Country: US (occurrence: US)
  Receive Date: 20221104
  Receipt Date: 20221104
  Transmission Date: 20230112
  Serious: No
  Sender: FDA-Public Use
  Company Number: US-MACLEODS PHARMACEUTICALS US LTD-MAC2022038094

PATIENT

DRUGS (1)
  1. MONTELUKAST SODIUM [Suspect]
     Active Substance: MONTELUKAST SODIUM
     Indication: Product used for unknown indication
     Dosage: 10 MILLIGRAM, QD (1 TABLET OF 10 MG ONCE) (NDC: 33342-0102-15)
     Route: 065
     Dates: start: 20221021, end: 20221021

REACTIONS (6)
  - Throat irritation [Recovered/Resolved]
  - Periorbital swelling [Recovered/Resolved]
  - Eyelids pruritus [Recovered/Resolved]
  - Ear pruritus [Recovered/Resolved]
  - Swelling of eyelid [Recovered/Resolved]
  - Cough [Recovered/Resolved]

NARRATIVE: CASE EVENT DATE: 20221021
